FAERS Safety Report 5932416-6 (Version None)
Quarter: 2008Q4

REPORT INFORMATION
  Report Type: 
  Country: None (occurrence: None)
  Receive Date: 20081028
  Receipt Date: 20081022
  Transmission Date: 20090506
  Serious: Yes (Other)
  Sender: FDA-Public Use
  Company Number: CA-ROCHE-551618

PATIENT
  Sex: Female

DRUGS (4)
  1. NAPROSYN [Suspect]
     Indication: ANKYLOSING SPONDYLITIS
     Route: 048
     Dates: start: 20050101
  2. NAPROSYN [Suspect]
     Route: 048
     Dates: start: 20070101, end: 20071001
  3. NAPROSYN [Suspect]
     Route: 048
     Dates: start: 20071001
  4. ACETAMINOPHEN [Concomitant]
     Indication: ANKYLOSING SPONDYLITIS
     Dosage: DOSAGE REGIMEN REPORTED AS ^2 X HS^.
     Route: 048
     Dates: start: 20070101

REACTIONS (1)
  - ABORTION SPONTANEOUS [None]
